FAERS Safety Report 14075812 (Version 2)
Quarter: 2017Q4

REPORT INFORMATION
  Report Type: Spontaneous
  Country: SE (occurrence: SE)
  Receive Date: 20171011
  Receipt Date: 20171016
  Transmission Date: 20180321
  Serious: Yes (Other)
  Sender: FDA-Public Use
  Company Number: SE-SA-2017SA193512

PATIENT
  Age: 79 Year
  Sex: Female

DRUGS (3)
  1. FURIX [Concomitant]
     Active Substance: FUROSEMIDE
     Route: 065
  2. CLOPIDOGREL BISULFATE. [Suspect]
     Active Substance: CLOPIDOGREL BISULFATE
     Route: 048
  3. IMOVANE [Concomitant]
     Active Substance: ZOPICLONE
     Route: 065

REACTIONS (1)
  - Alopecia areata [Unknown]

NARRATIVE: CASE EVENT DATE: 2017
